FAERS Safety Report 25470723 (Version 2)
Quarter: 2025Q3

REPORT INFORMATION
  Report Type: Spontaneous
  Country: EU (occurrence: EU)
  Receive Date: 20250624
  Receipt Date: 20250804
  Transmission Date: 20251021
  Serious: Yes (Hospitalization)
  Sender: BEIGENE
  Company Number: None

PATIENT
  Age: 74 Year

DRUGS (1)
  1. BRUKINSA [Suspect]
     Active Substance: ZANUBRUTINIB
     Indication: Chronic lymphocytic leukaemia

REACTIONS (7)
  - Renal failure [Unknown]
  - Presyncope [Unknown]
  - Anaemia [Recovering/Resolving]
  - Pyrexia [Recovered/Resolved]
  - Chromaturia [Unknown]
  - Fall [Unknown]
  - C-reactive protein increased [Unknown]
